FAERS Safety Report 7138063-5 (Version None)
Quarter: 2010Q4

REPORT INFORMATION
  Report Type: 
  Country: None (occurrence: None)
  Receive Date: 20101206
  Receipt Date: 20101203
  Transmission Date: 20110411
  Serious: Yes (Death, Life-Threatening)
  Sender: FDA-Public Use
  Company Number: LV-B.I. PHARMACEUTICALS,INC./RIDGEFIELD-2010-AP-00536AP

PATIENT
  Age: 97 Year
  Sex: Female
  Weight: 55 kg

DRUGS (7)
  1. PRADAXA [Suspect]
     Indication: HIP ARTHROPLASTY
     Dosage: 150 MG
     Route: 048
     Dates: start: 20100917, end: 20100923
  2. TRAMADOL HCL [Concomitant]
     Dosage: 2X
  3. PHENTANYL [Concomitant]
  4. DICLOFENAC [Concomitant]
  5. DIAZEPREX [Concomitant]
     Dosage: 10 MG
  6. BISEPTOL [Concomitant]
     Dosage: 960 MG
  7. TRIFAS [Concomitant]
     Dosage: 5 MG
     Route: 048

REACTIONS (3)
  - ANAEMIA [None]
  - GASTROINTESTINAL HAEMORRHAGE [None]
  - RENAL FAILURE ACUTE [None]
